FAERS Safety Report 8525183-3 (Version None)
Quarter: 2012Q3

REPORT INFORMATION
  Report Type: 
  Country: None (occurrence: None)
  Receive Date: 20120720
  Receipt Date: 20120716
  Transmission Date: 20120928
  Serious: Yes (Hospitalization, Other)
  Sender: FDA-Public Use
  Company Number: PHEH2012US008903

PATIENT
  Sex: Female

DRUGS (9)
  1. ASPIRIN [Concomitant]
     Dosage: 81 MG, UNK
  2. ATENOLOL [Concomitant]
     Dosage: 25 MG, UNK
  3. KLOR-CON [Concomitant]
     Dosage: 10 MEQ, UNK
  4. DONEPEZIL HCL [Concomitant]
     Dosage: 5 MG, UNK
  5. BACLOFEN [Concomitant]
     Dosage: 10 MG, UNK
  6. GILENYA [Suspect]
     Indication: MULTIPLE SCLEROSIS
     Dosage: 0.5 MG, DAILY
     Route: 048
     Dates: start: 20120101
  7. CRANBERRY [Concomitant]
     Dosage: 200 MG, UNK
  8. AMANTADINE HCL [Concomitant]
     Dosage: 100 MG, UNK
  9. SERTRALINE HYDROCHLORIDE [Concomitant]
     Dosage: 25 MG, UNK

REACTIONS (3)
  - MALAISE [None]
  - DEPRESSION [None]
  - APATHY [None]
